FAERS Safety Report 7881316-3 (Version None)
Quarter: 2011Q4

REPORT INFORMATION
  Report Type: 
  Country: None (occurrence: None)
  Receive Date: 20111101
  Receipt Date: 20110524
  Transmission Date: 20120403
  Serious: No
  Sender: FDA-Public Use
  Company Number: US-AMGEN-USASP2011026982

PATIENT
  Sex: Female

DRUGS (3)
  1. PLAQUENIL [Concomitant]
     Dosage: 1 MG, QD
     Dates: start: 20101201
  2. ENBREL [Suspect]
     Indication: RHEUMATOID ARTHRITIS
     Dosage: 50 MG, QWK
     Dates: start: 20110511
  3. METHOTREXATE [Concomitant]
     Dosage: 1 MG, QWK
     Dates: start: 20110201

REACTIONS (1)
  - DRUG INEFFECTIVE [None]
